FAERS Safety Report 7352840-7 (Version None)
Quarter: 2011Q1

REPORT INFORMATION
  Report Type: 
  Country: None (occurrence: None)
  Receive Date: 20110302
  Receipt Date: 20100330
  Transmission Date: 20110831
  Serious: Yes (Other)
  Sender: FDA-Public Use
  Company Number: 305641

PATIENT
  Age: 74 Year
  Sex: Male
  Weight: 72.6 kg

DRUGS (6)
  1. SIMVASTATIN [Concomitant]
  2. LANTUS [Concomitant]
  3. LOSARTAN (LOSARTAN) [Concomitant]
  4. NOVOLIN R [Suspect]
     Indication: TYPE 2 DIABETES MELLITUS
     Dosage: 10 IU, TID, SUBCUTANEOUS
     Route: 058
  5. SEVELAMER (SEVELAMER) [Concomitant]
  6. LEVOTHYROXINE SODIUM [Concomitant]

REACTIONS (2)
  - BLOOD GLUCOSE INCREASED [None]
  - BLOOD GLUCOSE DECREASED [None]
